FAERS Safety Report 14311892 (Version 1)
Quarter: 2017Q4

REPORT INFORMATION
  Report Type: Spontaneous
  Country: BE (occurrence: BE)
  Receive Date: 20171221
  Receipt Date: 20171221
  Transmission Date: 20180321
  Serious: Yes (Hospitalization, Other)
  Sender: FDA-Public Use
  Company Number: BE-CIPLA LTD.-2017BE24521

PATIENT

DRUGS (1)
  1. TOPIRAMATE. [Suspect]
     Active Substance: TOPIRAMATE
     Indication: MIGRAINE PROPHYLAXIS
     Dosage: 100 MG, UNK DOSAGE FORM: UNSPECIFIED, 25 MG 2 TIMES IN THE MORNING AND 2 TIMES 25 MG IN THE EVENING
     Route: 048

REACTIONS (4)
  - Memory impairment [Unknown]
  - Disturbance in attention [Unknown]
  - Mental impairment [Unknown]
  - Loss of personal independence in daily activities [Unknown]
